FAERS Safety Report 21594243 (Version 3)
Quarter: 2025Q2

REPORT INFORMATION
  Report Type: Spontaneous
  Country: PL (occurrence: PL)
  Receive Date: 20221115
  Receipt Date: 20250503
  Transmission Date: 20250717
  Serious: Yes (Hospitalization, Other)
  Sender: AUROBINDO
  Company Number: PL-SYNOPTIS-034-L-001

PATIENT
  Age: 43 Year
  Sex: Male

DRUGS (48)
  1. DARUNAVIR [Suspect]
     Active Substance: DARUNAVIR
     Indication: Product used for unknown indication
     Route: 065
  2. DARUNAVIR [Suspect]
     Active Substance: DARUNAVIR
     Dosage: 600 MILLIGRAM, TWO TIMES A DAY
     Route: 065
  3. ERTAPENEM [Suspect]
     Active Substance: ERTAPENEM
     Indication: Urinary tract infection
     Route: 065
  4. ERTAPENEM [Suspect]
     Active Substance: ERTAPENEM
     Dosage: 1000 MILLIGRAM, ONCE A DAY
     Route: 042
  5. RITONAVIR [Suspect]
     Active Substance: RITONAVIR
     Indication: Product used for unknown indication
     Route: 065
  6. RITONAVIR [Suspect]
     Active Substance: RITONAVIR
     Dosage: 100 MILLIGRAM, TWO TIMES A DAY
     Route: 065
  7. ABACAVIR\LAMIVUDINE [Suspect]
     Active Substance: ABACAVIR\LAMIVUDINE
     Indication: Product used for unknown indication
     Route: 065
  8. CLARITHROMYCIN [Suspect]
     Active Substance: CLARITHROMYCIN
     Indication: Tuberculosis
     Route: 048
  9. CLARITHROMYCIN [Suspect]
     Active Substance: CLARITHROMYCIN
     Route: 065
  10. CLOFAZIMINE [Suspect]
     Active Substance: CLOFAZIMINE
     Indication: Product used for unknown indication
     Route: 065
  11. CLINDAMYCIN [Suspect]
     Active Substance: CLINDAMYCIN
     Indication: Product used for unknown indication
     Route: 065
  12. COTRIMOXAZOLE [Suspect]
     Active Substance: SULFAMETHOXAZOLE\TRIMETHOPRIM
     Indication: Product used for unknown indication
     Route: 065
  13. COTRIMOXAZOLE [Suspect]
     Active Substance: SULFAMETHOXAZOLE\TRIMETHOPRIM
     Indication: Antifungal prophylaxis
     Dosage: 960 MILLIGRAM, EVERY OTHER DAY
     Route: 048
  14. TRUVADA [Suspect]
     Active Substance: EMTRICITABINE\TENOFOVIR DISOPROXIL FUMARATE
     Indication: Product used for unknown indication
     Route: 065
  15. ETHIONAMIDE [Suspect]
     Active Substance: ETHIONAMIDE
     Indication: Product used for unknown indication
     Route: 065
  16. FLUCONAZOLE [Suspect]
     Active Substance: FLUCONAZOLE
     Indication: Candida infection
     Dosage: 100 MILLIGRAM, TWO TIMES A DAY
     Route: 048
  17. FLUCONAZOLE [Suspect]
     Active Substance: FLUCONAZOLE
     Indication: Candida infection
     Dosage: 100 MILLIGRAM, ONCE A DAY
     Route: 048
  18. FLUCONAZOLE [Suspect]
     Active Substance: FLUCONAZOLE
     Indication: Candida infection
     Route: 048
  19. FLUCONAZOLE [Suspect]
     Active Substance: FLUCONAZOLE
     Indication: Candida infection
     Route: 048
  20. FOSFOMYCIN [Suspect]
     Active Substance: FOSFOMYCIN
     Indication: Product used for unknown indication
     Route: 065
  21. ISONIAZID [Suspect]
     Active Substance: ISONIAZID
     Indication: Product used for unknown indication
     Route: 065
  22. LOPINAVIR\RITONAVIR [Suspect]
     Active Substance: LOPINAVIR\RITONAVIR
     Indication: Product used for unknown indication
     Route: 065
  23. LEVOFLOXACIN [Suspect]
     Active Substance: LEVOFLOXACIN
     Indication: Tuberculosis
     Dosage: 500 MILLIGRAM, ONCE A DAY
     Route: 048
     Dates: start: 2011
  24. LEVOFLOXACIN [Suspect]
     Active Substance: LEVOFLOXACIN
     Dosage: 500 MILLIGRAM, TWO TIMES A DAY
     Route: 065
  25. LEVOFLOXACIN [Suspect]
     Active Substance: LEVOFLOXACIN
     Indication: Tuberculosis
     Dosage: 250 MILLIGRAM, TWO TIMES A DAY
     Route: 048
  26. MEROPENEM [Suspect]
     Active Substance: MEROPENEM
     Indication: Urinary tract infection
     Dosage: 1000 MILLIGRAM, TWO TIMES A DAY
     Route: 042
  27. MEROPENEM [Suspect]
     Active Substance: MEROPENEM
     Indication: Urinary tract infection
     Dosage: 500 MILLIGRAM, FOUR TIMES/DAY
     Route: 042
  28. PYRAZINAMIDE [Suspect]
     Active Substance: PYRAZINAMIDE
     Indication: Product used for unknown indication
     Route: 065
  29. RIFAMPIN [Suspect]
     Active Substance: RIFAMPIN
     Indication: Product used for unknown indication
     Route: 065
  30. RALTEGRAVIR [Suspect]
     Active Substance: RALTEGRAVIR
     Indication: Product used for unknown indication
     Route: 065
  31. RALTEGRAVIR [Suspect]
     Active Substance: RALTEGRAVIR
     Route: 065
     Dates: start: 2011
  32. RALTEGRAVIR [Suspect]
     Active Substance: RALTEGRAVIR
     Dosage: 400 MILLIGRAM, TWO TIMES A DAY
     Route: 065
  33. STREPTOMYCIN [Suspect]
     Active Substance: STREPTOMYCIN SULFATE
     Indication: Product used for unknown indication
     Route: 065
  34. STREPTOMYCIN [Suspect]
     Active Substance: STREPTOMYCIN SULFATE
     Dosage: 1 GRAM, ONCE A DAY
     Route: 030
  35. EFAVIRENZ [Suspect]
     Active Substance: EFAVIRENZ
     Indication: Product used for unknown indication
     Route: 065
  36. GANCICLOVIR [Concomitant]
     Active Substance: GANCICLOVIR
     Indication: Cytomegalovirus chorioretinitis
     Dosage: 250 MILLIGRAM, TWO TIMES A DAY
     Route: 042
     Dates: start: 2011
  37. CLARITHROMYCIN [Concomitant]
     Active Substance: CLARITHROMYCIN
     Indication: Tuberculosis
     Dosage: 500 MILLIGRAM, TWO TIMES A DAY
     Route: 048
     Dates: start: 2011
  38. SULFAMETHOXAZOLE\TRIMETHOPRIM [Concomitant]
     Active Substance: SULFAMETHOXAZOLE\TRIMETHOPRIM
     Indication: Antifungal prophylaxis
     Route: 048
     Dates: start: 2011
  39. TRUVADA [Concomitant]
     Active Substance: EMTRICITABINE\TENOFOVIR DISOPROXIL FUMARATE
     Indication: HIV infection
     Route: 065
     Dates: start: 2011
  40. VORICONAZOLE [Concomitant]
     Active Substance: VORICONAZOLE
     Indication: Candida infection
     Route: 065
     Dates: start: 2011
  41. VORICONAZOLE [Concomitant]
     Active Substance: VORICONAZOLE
     Dosage: 0.4 GRAM, TWO TIMES A DAY
     Route: 065
     Dates: start: 2011
  42. CLOFAZIMINE [Concomitant]
     Active Substance: CLOFAZIMINE
     Indication: Tuberculosis
     Dosage: 100 MILLIGRAM, TWO TIMES A DAY
     Route: 048
     Dates: start: 2011
  43. CLINDAMYCIN [Concomitant]
     Active Substance: CLINDAMYCIN
     Indication: Evidence based treatment
     Dosage: 600 MILLIGRAM, 3 TIMES A DAY
     Route: 065
     Dates: start: 2011
  44. CLINDAMYCIN [Concomitant]
     Active Substance: CLINDAMYCIN
     Indication: Cerebral toxoplasmosis
  45. ETHIONAMIDE [Concomitant]
     Active Substance: ETHIONAMIDE
     Indication: Tuberculosis
     Dosage: 750 MILLIGRAM, TWO TIMES A DAY
     Route: 048
     Dates: start: 2011
  46. PYRIMETHAMINE [Concomitant]
     Active Substance: PYRIMETHAMINE
     Indication: Evidence based treatment
     Route: 065
     Dates: start: 2011
  47. PYRIMETHAMINE [Concomitant]
     Active Substance: PYRIMETHAMINE
     Indication: Cerebral toxoplasmosis
  48. EFAVIRENZ [Concomitant]
     Active Substance: EFAVIRENZ
     Indication: HIV infection
     Dosage: 800 MILLIGRAM, ONCE A DAY
     Route: 065
     Dates: start: 2011

REACTIONS (4)
  - Hepatitis cholestatic [Unknown]
  - Pancreatitis [Unknown]
  - Urinary tract infection [Unknown]
  - Phimosis [Unknown]

NARRATIVE: CASE EVENT DATE: 20110101
